FAERS Safety Report 7956690-X (Version None)
Quarter: 2011Q4

REPORT INFORMATION
  Report Type: 
  Country: None (occurrence: None)
  Receive Date: 20111205
  Receipt Date: 20111128
  Transmission Date: 20120403
  Serious: Yes (Other)
  Sender: FDA-Public Use
  Company Number: FR-EISAI INC-E2090-01878-SPO-FR

PATIENT
  Sex: Female
  Weight: 51 kg

DRUGS (3)
  1. ZONEGRAN [Suspect]
     Indication: EPILEPSY
     Dosage: UNKNOWN
     Route: 048
     Dates: start: 20090301
  2. URBANYL [Concomitant]
  3. TRILEPTAL [Concomitant]

REACTIONS (5)
  - MALNUTRITION [None]
  - WEIGHT DECREASED [None]
  - ANXIETY [None]
  - APHASIA [None]
  - OROPHARYNGEAL DISCOMFORT [None]
